FAERS Safety Report 21146147 (Version 2)
Quarter: 2022Q3

REPORT INFORMATION
  Report Type: Spontaneous
  Country: US (occurrence: US)
  Receive Date: 20220729
  Receipt Date: 20220803
  Transmission Date: 20221027
  Serious: No
  Sender: FDA-Public Use
  Company Number: US-ORGANON-O2207USA002022

PATIENT
  Sex: Female
  Weight: 117.91 kg

DRUGS (1)
  1. NEXPLANON [Suspect]
     Active Substance: ETONOGESTREL
     Indication: Contraception
     Dosage: 1 IMPLANT OF 68 MILLIGRAM, LEFT ARM
     Route: 059
     Dates: start: 20220613

REACTIONS (5)
  - Skin wrinkling [Not Recovered/Not Resolved]
  - Implant site bruising [Recovering/Resolving]
  - Implant site pain [Recovering/Resolving]
  - Implant site pain [Unknown]
  - Device placement issue [Not Recovered/Not Resolved]

NARRATIVE: CASE EVENT DATE: 20220101
